FAERS Safety Report 24695948 (Version 1)
Quarter: 2024Q4

REPORT INFORMATION
  Report Type: Spontaneous
  Country: US (occurrence: US)
  Receive Date: 20241204
  Receipt Date: 20241204
  Transmission Date: 20250114
  Serious: No
  Sender: GLAXOSMITHKLINE
  Company Number: US-GSKCCFUS-Case-02156394_AE-118881

PATIENT
  Sex: Male

DRUGS (1)
  1. VENTOLIN HFA [Suspect]
     Active Substance: ALBUTEROL SULFATE
     Indication: Product used for unknown indication
     Dosage: 2 PUFF(S), 6D AS NEEDED

REACTIONS (2)
  - Wrong technique in device usage process [Unknown]
  - Device use error [Unknown]
